FAERS Safety Report 8085657-9 (Version None)
Quarter: 2012Q1

REPORT INFORMATION
  Report Type: 
  Country: None (occurrence: None)
  Receive Date: 20120128
  Receipt Date: 20110401
  Transmission Date: 20120608
  Serious: No
  Sender: FDA-Public Use
  Company Number: US-ABBOTT-11P-163-0716371-00

PATIENT
  Sex: Female
  Weight: 83.99 kg

DRUGS (2)
  1. HUMIRA [Suspect]
     Indication: RHEUMATOID ARTHRITIS
     Dates: start: 20060101
  2. LISINOPRIL [Concomitant]
     Indication: HYPERTENSION

REACTIONS (4)
  - ARTHRALGIA [None]
  - LIGAMENT RUPTURE [None]
  - JOINT SWELLING [None]
  - OSTEOARTHRITIS [None]
